FAERS Safety Report 13846773 (Version 1)
Quarter: 2017Q3

REPORT INFORMATION
  Report Type: Spontaneous
  Country: US (occurrence: US)
  Receive Date: 20170808
  Receipt Date: 20170808
  Transmission Date: 20171127
  Serious: No
  Sender: FDA-Public Use
  Company Number: US-SA-2017SA096411

PATIENT
  Age: 46 Year
  Sex: Female

DRUGS (1)
  1. XYZAL ALLERGY 24HR [Suspect]
     Active Substance: LEVOCETIRIZINE DIHYDROCHLORIDE
     Indication: PROPHYLAXIS
     Dosage: TAKEN FROM DURING THE LAST WEEK OF?MARCH
     Route: 065
     Dates: end: 20170505

REACTIONS (1)
  - Aphonia [Recovered/Resolved]

NARRATIVE: CASE EVENT DATE: 20170408
